FAERS Safety Report 5968021-5 (Version None)
Quarter: 2008Q4

REPORT INFORMATION
  Report Type: 
  Country: None (occurrence: None)
  Receive Date: 20081121
  Receipt Date: 20081105
  Transmission Date: 20090506
  Serious: Yes (Hospitalization)
  Sender: FDA-Public Use
  Company Number: 8039451

PATIENT
  Age: 72 Year
  Sex: Female

DRUGS (8)
  1. PREDNISOLONE [Suspect]
     Indication: GLOMERULONEPHRITIS
     Dosage: 30 MG /D PO
     Route: 048
  2. PREDNISOLONE [Suspect]
     Indication: WEGENER'S GRANULOMATOSIS
     Dosage: 30 MG /D PO
     Route: 048
  3. PREDNISOLONE [Suspect]
     Indication: GLOMERULONEPHRITIS
     Dosage: 10 MG /D PO
     Route: 048
  4. PREDNISOLONE [Suspect]
     Indication: WEGENER'S GRANULOMATOSIS
     Dosage: 10 MG /D PO
     Route: 048
  5. CYCLOPHOSPHAMIDE [Suspect]
     Indication: GLOMERULONEPHRITIS
     Dosage: IV
     Route: 042
  6. CYCLOPHOSPHAMIDE [Suspect]
     Indication: WEGENER'S GRANULOMATOSIS
     Dosage: IV
     Route: 042
  7. METHYLPREDNISOLONE 16MG TAB [Suspect]
     Indication: GLOMERULONEPHRITIS
  8. METHYLPREDNISOLONE 16MG TAB [Suspect]
     Indication: WEGENER'S GRANULOMATOSIS

REACTIONS (3)
  - DYSPHASIA [None]
  - NEOPLASM [None]
  - OEDEMA [None]
